FAERS Safety Report 10150311 (Version 2)
Quarter: 2014Q2

REPORT INFORMATION
  Report Type: Spontaneous
  Country: FR (occurrence: FR)
  Receive Date: 20140502
  Receipt Date: 20140513
  Transmission Date: 20141212
  Serious: Yes (Other)
  Sender: FDA-Public Use
  Company Number: FR-BRISTOL-MYERS SQUIBB COMPANY-20664371

PATIENT
  Age: 17 Year
  Sex: Female

DRUGS (6)
  1. ETOPOPHOS [Suspect]
     Indication: OSTEOSARCOMA METASTATIC
     Dosage: 4 DAYS
     Route: 042
     Dates: start: 20130831, end: 20130903
  2. IFOSFAMIDE [Suspect]
     Indication: OSTEOSARCOMA METASTATIC
     Dosage: 6.5 G/D FOR 3 DAYS FROM 09-DEC-2013 TO 11-DEC-2013
     Dates: start: 20130831, end: 20130901
  3. MESNA [Suspect]
     Dosage: EG
     Route: 042
     Dates: start: 20130831, end: 20130902
  4. PLITICAN [Suspect]
     Route: 042
     Dates: start: 20130831, end: 20130902
  5. EMEND [Suspect]
     Dosage: 80 MG/D IV FOR 5 DAYS FROM 31-AUG-2013 TO 04-SEP-2013 ORALLY
     Route: 042
     Dates: start: 20130831, end: 20130904
  6. ATARAX [Concomitant]
     Route: 048
     Dates: start: 20130831

REACTIONS (3)
  - Neurotoxicity [Recovered/Resolved]
  - Encephalopathy [Recovered/Resolved]
  - Off label use [Unknown]
